FAERS Safety Report 23909156 (Version 1)
Quarter: 2024Q2

REPORT INFORMATION
  Report Type: Spontaneous
  Country: US (occurrence: US)
  Receive Date: 20240528
  Receipt Date: 20240528
  Transmission Date: 20240715
  Serious: No
  Sender: FDA-Public Use
  Company Number: US-AMNEAL PHARMACEUTICALS-2023-AMRX-02505

PATIENT
  Sex: Female
  Weight: 54.422 kg

DRUGS (3)
  1. BUPRENORPHINE TRANSDERMAL SYSTEM [Suspect]
     Active Substance: BUPRENORPHINE
     Indication: Back pain
     Dosage: UNK
     Route: 062
  2. BUPRENORPHINE TRANSDERMAL SYSTEM [Suspect]
     Active Substance: BUPRENORPHINE
     Dosage: 10 MCG/HOUR
     Route: 062
     Dates: start: 202302
  3. SYNTHROID [Concomitant]
     Active Substance: LEVOTHYROXINE SODIUM
     Indication: Hypothyroidism
     Dosage: 50 MCG ONCE DAILY
     Route: 065

REACTIONS (2)
  - Skin irritation [Not Recovered/Not Resolved]
  - Rash pruritic [Not Recovered/Not Resolved]
